FAERS Safety Report 9414723 (Version 1)
Quarter: 2013Q3

REPORT INFORMATION
  Report Type: Spontaneous
  Country: US (occurrence: US)
  Receive Date: 20130723
  Receipt Date: 20130723
  Transmission Date: 20140515
  Serious: Yes (Congenital Anomaly)
  Sender: FDA-Public Use
  Company Number: US-FRI-1000046804

PATIENT
  Age: 0 Day
  Sex: Male

DRUGS (3)
  1. CELEXA [Suspect]
     Route: 064
  2. ZOLOFT [Suspect]
  3. PROZAC [Suspect]

REACTIONS (4)
  - Congenital anomaly [Unknown]
  - Cleft lip [Unknown]
  - Cleft palate [Unknown]
  - Congenital cardiovascular anomaly [Unknown]
